FAERS Safety Report 6848625-8 (Version None)
Quarter: 2010Q3

REPORT INFORMATION
  Report Type: 
  Country: None (occurrence: None)
  Receive Date: 20100716
  Receipt Date: 20100708
  Transmission Date: 20110219
  Serious: Yes (Death)
  Sender: FDA-Public Use
  Company Number: GXKR2010AT03767

PATIENT
  Age: 59 Year
  Sex: Female
  Weight: 77 kg

DRUGS (2)
  1. EBETREXAT (NGX) [Suspect]
     Indication: POLYARTHRITIS
     Dosage: 30 MG, QW
     Route: 048
     Dates: start: 20000101, end: 20100212
  2. NOVALGIN                                /SCH/ [Suspect]
     Indication: POLYARTHRITIS
     Dosage: 500 MG, TID
     Route: 048
     Dates: start: 20100201, end: 20100212

REACTIONS (5)
  - LEUKOPENIA [None]
  - MULTI-ORGAN FAILURE [None]
  - PANCYTOPENIA [None]
  - SEPSIS [None]
  - THROMBOCYTOPENIA [None]
